FAERS Safety Report 5750575-5 (Version None)
Quarter: 2008Q2

REPORT INFORMATION
  Report Type: 
  Country: None (occurrence: None)
  Receive Date: 20080523
  Receipt Date: 20080523
  Transmission Date: 20081010
  Serious: No
  Sender: FDA-Public Use
  Company Number: None

PATIENT
  Sex: Male
  Weight: 70 kg

DRUGS (2)
  1. CISPLATIN [Suspect]
     Dosage: 188 MG
     Dates: end: 20080513
  2. ERBITUX [Suspect]
     Dosage: 470 MG
     Dates: end: 20080513

REACTIONS (2)
  - DEHYDRATION [None]
  - PAIN [None]
